FAERS Safety Report 10907562 (Version 2)
Quarter: 2015Q2

REPORT INFORMATION
  Report Type: Spontaneous
  Country: US (occurrence: US)
  Receive Date: 20150312
  Receipt Date: 20150505
  Transmission Date: 20150821
  Serious: No
  Sender: FDA-Public Use
  Company Number: US-PFIZER INC-2015087025

PATIENT
  Age: 70 Year

DRUGS (2)
  1. INLYTA [Suspect]
     Active Substance: AXITINIB
     Indication: RENAL CANCER
     Dosage: 5 MG, DAILY (TOTAL 7MG)
     Dates: start: 20150205, end: 20150215
  2. INLYTA [Suspect]
     Active Substance: AXITINIB
     Dosage: 1 MG, DAILY (2DFXDAY) (TOTAL 7MG)
     Dates: start: 20150205, end: 20150215

REACTIONS (2)
  - Renal cancer [Unknown]
  - Disease progression [Unknown]
